FAERS Safety Report 22876078 (Version 2)
Quarter: 2023Q4

REPORT INFORMATION
  Report Type: Spontaneous
  Country: US (occurrence: US)
  Receive Date: 20230829
  Receipt Date: 20231103
  Transmission Date: 20240110
  Serious: Yes (Life-Threatening, Hospitalization, Other)
  Sender: FDA-Public Use
  Company Number: US-AUROBINDO-AUR-APL-2023-052984

PATIENT
  Age: 60 Year
  Sex: Female
  Weight: 38 kg

DRUGS (3)
  1. BUPIVACAINE HYDROCHLORIDE [Suspect]
     Active Substance: BUPIVACAINE HYDROCHLORIDE
     Indication: Local anaesthesia
     Dosage: 150 MILLIGRAM(60ML OF 0.25% )
     Route: 065
  2. BUPIVACAINE [Suspect]
     Active Substance: BUPIVACAINE
     Indication: Local anaesthesia
     Dosage: 266 MILLIGRAM(20 ML)
     Route: 065
  3. SALINE [Concomitant]
     Active Substance: SODIUM CHLORIDE
     Indication: Product used for unknown indication
     Dosage: 100 MILLILITER
     Route: 065

REACTIONS (4)
  - Local anaesthetic systemic toxicity [Recovered/Resolved]
  - Hypotension [Recovered/Resolved]
  - Generalised tonic-clonic seizure [Recovered/Resolved]
  - Seizure [Recovered/Resolved]
